FAERS Safety Report 6986035-3 (Version None)
Quarter: 2010Q3

REPORT INFORMATION
  Report Type: 
  Country: None (occurrence: None)
  Receive Date: 20100910
  Receipt Date: 20100902
  Transmission Date: 20110219
  Serious: Yes (Death)
  Sender: FDA-Public Use
  Company Number: A-US2010-39548

PATIENT
  Age: 89 Year
  Sex: Female

DRUGS (1)
  1. TRACLEER [Suspect]
     Indication: PULMONARY ARTERIAL HYPERTENSION
     Dosage: UNK ORAL
     Route: 048
     Dates: start: 20100810, end: 20100901

REACTIONS (1)
  - TRICUSPID VALVE INCOMPETENCE [None]
